FAERS Safety Report 18843589 (Version 1)
Quarter: 2021Q1

REPORT INFORMATION
  Report Type: Report from Study
  Country: US (occurrence: US)
  Receive Date: 20210203
  Receipt Date: 20210203
  Transmission Date: 20210419
  Serious: Yes (Hospitalization)
  Sender: FDA-Public Use
  Company Number: US-EXELIXIS-CABO-20028522

PATIENT
  Sex: Female

DRUGS (13)
  1. MULTIVITAMIN [Concomitant]
     Active Substance: VITAMINS
  2. LETROZOLE. [Concomitant]
     Active Substance: LETROZOLE
  3. CABOMETYX [Suspect]
     Active Substance: CABOZANTINIB S-MALATE
     Indication: RENAL CELL CARCINOMA
     Dosage: 20 MG, QD(Q AM W/O FOOD)
     Route: 048
     Dates: start: 20200224
  4. DILTIAZEM. [Concomitant]
     Active Substance: DILTIAZEM
  5. PLAVIX [Concomitant]
     Active Substance: CLOPIDOGREL BISULFATE
  6. NEURONTIN [Concomitant]
     Active Substance: GABAPENTIN
  7. ATENOLOL. [Concomitant]
     Active Substance: ATENOLOL
  8. LIPITOR [Concomitant]
     Active Substance: ATORVASTATIN CALCIUM
  9. ZANAFLEX [Concomitant]
     Active Substance: TIZANIDINE HYDROCHLORIDE
  10. TRICOR [Concomitant]
     Active Substance: FENOFIBRATE
  11. METFORMIN [Concomitant]
     Active Substance: METFORMIN HYDROCHLORIDE
  12. LASIX [Concomitant]
     Active Substance: FUROSEMIDE
  13. AMITRIPTYLINE HCL [Concomitant]
     Active Substance: AMITRIPTYLINE

REACTIONS (9)
  - Muscular weakness [Not Recovered/Not Resolved]
  - Myalgia [Not Recovered/Not Resolved]
  - Blood pressure increased [Recovered/Resolved]
  - Fatigue [Not Recovered/Not Resolved]
  - Constipation [Recovering/Resolving]
  - Gait disturbance [Not Recovered/Not Resolved]
  - Blood pressure decreased [Not Recovered/Not Resolved]
  - Asthenia [Not Recovered/Not Resolved]
  - Gastrointestinal haemorrhage [Not Recovered/Not Resolved]
